FAERS Safety Report 13175824 (Version 2)
Quarter: 2017Q1

REPORT INFORMATION
  Report Type: Report from Study
  Country: FR (occurrence: FR)
  Receive Date: 20170201
  Receipt Date: 20170227
  Transmission Date: 20170428
  Serious: Yes (Hospitalization)
  Sender: FDA-Public Use
  Company Number: FR-009507513-1701FRA012958

PATIENT
  Age: 79 Year
  Sex: Female
  Weight: 56 kg

DRUGS (4)
  1. PIVALONE [Suspect]
     Active Substance: TIXOCORTOL PIVALATE
     Indication: COUGH
     Dosage: 72 DF(3 DF, EVERY HOUR)
     Route: 045
     Dates: start: 20161216, end: 20161223
  2. PEMBROLIZUMAB. [Suspect]
     Active Substance: PEMBROLIZUMAB
     Indication: MALIGNANT MELANOMA
     Dosage: 2 MG/KG, Q3W
     Route: 042
     Dates: start: 20150606
  3. AMOXICILLIN. [Suspect]
     Active Substance: AMOXICILLIN
     Indication: PNEUMONIA
     Dosage: 2G (1 G, BID)
     Route: 048
     Dates: start: 20161216, end: 20161225
  4. CARBOCYSTEINE [Suspect]
     Active Substance: CARBOCYSTEINE
     Indication: COUGH
     Dosage: 10ML(50 ML, BID)
     Route: 048
     Dates: start: 20161216, end: 20161223

REACTIONS (4)
  - Rash maculo-papular [Recovered/Resolved with Sequelae]
  - Cheilitis [Recovered/Resolved]
  - Conjunctivitis [Recovered/Resolved]
  - Pyrexia [Recovered/Resolved]

NARRATIVE: CASE EVENT DATE: 20161225
